FAERS Safety Report 9493188 (Version 1)
Quarter: 2013Q3

REPORT INFORMATION
  Report Type: Spontaneous
  Country: US (occurrence: US)
  Receive Date: 20130902
  Receipt Date: 20130902
  Transmission Date: 20140515
  Serious: Yes (Other)
  Sender: FDA-Public Use
  Company Number: US-BRISTOL-MYERS SQUIBB COMPANY-19227073

PATIENT
  Sex: Male

DRUGS (1)
  1. ONGLYZA TABS [Suspect]
     Dates: start: 201301

REACTIONS (1)
  - Pancreatic carcinoma [Unknown]
